FAERS Safety Report 11511197 (Version 2)
Quarter: 2015Q3

REPORT INFORMATION
  Report Type: Report from Study
  Country: DE (occurrence: DE)
  Receive Date: 20150915
  Receipt Date: 20150921
  Transmission Date: 20151125
  Serious: Yes (Death, Hospitalization)
  Sender: FDA-Public Use
  Company Number: PHHY2015DE098266

PATIENT
  Sex: Female
  Weight: 130 kg

DRUGS (25)
  1. MEDITONSIN [Concomitant]
     Indication: NASOPHARYNGITIS
     Dosage: 15 DRP, TID (DROPS)
     Route: 048
     Dates: start: 20130506, end: 20130527
  2. METHYLPREDNISOLONE. [Concomitant]
     Active Substance: METHYLPREDNISOLONE
     Indication: MULTIPLE SCLEROSIS RELAPSE
     Dosage: 1000 MG, QD
     Route: 042
     Dates: start: 20120813, end: 20120814
  3. CLEXANE [Concomitant]
     Active Substance: ENOXAPARIN SODIUM
     Dosage: 40 MG, QD
     Route: 058
     Dates: start: 20140723, end: 20140728
  4. INFLUENZA VACCINE [Concomitant]
     Active Substance: INFLUENZA VIRUS VACCINE
     Indication: PROPHYLAXIS
     Dosage: 1 DF, QD
     Route: 030
     Dates: start: 201401, end: 201401
  5. ZINC [Concomitant]
     Active Substance: ZINC\ZINC CHLORIDE
     Indication: NUTRITIONAL SUPPLEMENTATION
     Dosage: 1 DF, QD
     Route: 048
     Dates: start: 20131005, end: 20131019
  6. METHYLPREDNISOLONE. [Concomitant]
     Active Substance: METHYLPREDNISOLONE
     Dosage: 1000 MG, QD
     Route: 042
     Dates: start: 20140723, end: 20140728
  7. ZINC [Concomitant]
     Active Substance: ZINC\ZINC CHLORIDE
     Dosage: 1 DF, QD
     Route: 048
     Dates: start: 20131107
  8. NYSTATIN. [Concomitant]
     Active Substance: NYSTATIN
     Indication: PROPHYLAXIS
     Dosage: 1 DF, QD
     Route: 048
     Dates: start: 20131110
  9. FAMPYRA [Concomitant]
     Active Substance: DALFAMPRIDINE
     Indication: MULTIPLE SCLEROSIS
     Dosage: 10 MG, BID
     Route: 048
     Dates: start: 20111120
  10. ASPIRIN. [Concomitant]
     Active Substance: ASPIRIN
     Indication: NASOPHARYNGITIS
     Dosage: 1 DF, PRN
     Route: 048
     Dates: start: 20130517, end: 20130527
  11. UMCKALOABO [Concomitant]
     Indication: NASOPHARYNGITIS
     Dosage: 20 DRP, TID
     Route: 048
     Dates: start: 20130506, end: 20130527
  12. MEDITONSIN [Concomitant]
     Dosage: 1 DF, QD (TABLET)
     Route: 048
     Dates: start: 20131005, end: 20131019
  13. METHYLPREDNISOLONE. [Concomitant]
     Active Substance: METHYLPREDNISOLONE
     Dosage: 1000 MG, QD
     Route: 042
     Dates: start: 20140407, end: 20140411
  14. PANTOZOL [Concomitant]
     Active Substance: PANTOPRAZOLE SODIUM
     Indication: PROPHYLAXIS AGAINST GASTROINTESTINAL ULCER
     Dosage: 40 MG, QD
     Route: 048
     Dates: start: 20131107, end: 20131111
  15. SELENIUM [Concomitant]
     Active Substance: SELENIUM
     Indication: NASOPHARYNGITIS
     Dosage: 1 DF, QD
     Route: 048
     Dates: start: 20131005, end: 20131019
  16. CLEXANE [Concomitant]
     Active Substance: ENOXAPARIN SODIUM
     Indication: THROMBOSIS PROPHYLAXIS
     Dosage: 40 MG, QD
     Route: 058
     Dates: start: 20131107, end: 20131111
  17. PANTOPRAZOLE [Concomitant]
     Active Substance: PANTOPRAZOLE SODIUM
     Indication: PROPHYLAXIS AGAINST GASTROINTESTINAL ULCER
     Dosage: 40 MG, QD
     Route: 048
     Dates: start: 20140723, end: 20140728
  18. CELEN AF [Concomitant]
     Dosage: 1 DF, QD
     Route: 065
     Dates: start: 20131107
  19. GELOMYRTOL [Concomitant]
     Indication: NASOPHARYNGITIS
     Dosage: 1 DF, 3 X 2
     Route: 048
     Dates: start: 20130506, end: 20130527
  20. LOVELLE [Concomitant]
     Indication: CONTRACEPTION
     Dosage: 1 DF, QD
     Route: 048
     Dates: start: 2000
  21. METHYLPREDNISOLONE. [Concomitant]
     Active Substance: METHYLPREDNISOLONE
     Dosage: 1000 MG, QD
     Route: 042
     Dates: start: 20131107, end: 20131111
  22. GILENYA [Suspect]
     Active Substance: FINGOLIMOD HYDROCHLORIDE
     Indication: MULTIPLE SCLEROSIS
     Dosage: 0.5 MG, QD
     Route: 048
     Dates: start: 20110728, end: 20150107
  23. ZINC [Concomitant]
     Active Substance: ZINC\ZINC CHLORIDE
     Indication: NASOPHARYNGITIS
     Dosage: 1 DF, QD
     Route: 048
     Dates: start: 20130506, end: 20130527
  24. SELENIUM [Concomitant]
     Active Substance: SELENIUM
     Indication: NUTRITIONAL SUPPLEMENTATION
     Dosage: 1 DF, QD
     Route: 048
     Dates: start: 20131107
  25. CELEN AF [Concomitant]
     Indication: PRODUCT USED FOR UNKNOWN INDICATION
     Dosage: 1 DF, QD
     Route: 065
     Dates: start: 20131015, end: 20131019

REACTIONS (22)
  - C-reactive protein increased [Fatal]
  - Prothrombin time shortened [Fatal]
  - Blood uric acid increased [Fatal]
  - Hypotonia [Fatal]
  - Activated partial thromboplastin time prolonged [Fatal]
  - Blood glucose increased [Fatal]
  - Blood creatinine increased [Fatal]
  - Blood thyroid stimulating hormone increased [Fatal]
  - Glomerular filtration rate decreased [Fatal]
  - Blood lactate dehydrogenase increased [Fatal]
  - Dyspnoea [Fatal]
  - Blood triglycerides increased [Fatal]
  - Pulmonary embolism [Fatal]
  - Loss of consciousness [Fatal]
  - Alanine aminotransferase increased [Fatal]
  - Blood creatine phosphokinase increased [Fatal]
  - Cardio-respiratory arrest [Fatal]
  - International normalised ratio increased [Fatal]
  - Cyanosis [Fatal]
  - White blood cell count increased [Fatal]
  - Circulatory collapse [Fatal]
  - Aspartate aminotransferase increased [Fatal]

NARRATIVE: CASE EVENT DATE: 20150809
